FAERS Safety Report 12306773 (Version 1)
Quarter: 2016Q2

REPORT INFORMATION
  Report Type: Spontaneous
  Country: US (occurrence: US)
  Receive Date: 20160426
  Receipt Date: 20160426
  Transmission Date: 20160815
  Serious: Yes (Hospitalization)
  Sender: FDA-Public Use
  Company Number: US-ALKERMES INC.-ALK-2016-000886

PATIENT

DRUGS (9)
  1. VIVITROL [Suspect]
     Active Substance: NALTREXONE
     Indication: DRUG DEPENDENCE
     Dosage: 380 MG, Q28D
     Route: 030
     Dates: start: 20150716, end: 20150716
  2. SEROQUEL [Concomitant]
     Active Substance: QUETIAPINE FUMARATE
     Indication: PRODUCT USED FOR UNKNOWN INDICATION
     Dosage: 100 MG, QHS
     Route: 048
  3. VIVITROL [Suspect]
     Active Substance: NALTREXONE
     Dosage: 380 MG, Q28D
     Route: 030
     Dates: start: 20160209, end: 20160209
  4. NICOTINE. [Concomitant]
     Active Substance: NICOTINE
     Indication: SMOKING CESSATION THERAPY
     Dosage: UNK
     Route: 061
  5. VIVITROL [Suspect]
     Active Substance: NALTREXONE
     Dosage: 380 MG, Q28D
     Route: 030
     Dates: start: 20160321, end: 20160321
  6. VIVITROL [Suspect]
     Active Substance: NALTREXONE
     Dosage: 380 MG, Q28D
     Route: 030
     Dates: start: 201604
  7. PRAZOSIN [Concomitant]
     Active Substance: PRAZOSIN
     Indication: PRODUCT USED FOR UNKNOWN INDICATION
     Dosage: 8 MG, QD
     Route: 048
  8. VIVITROL [Suspect]
     Active Substance: NALTREXONE
     Dosage: 380 MG, Q28D
     Route: 030
     Dates: start: 20150903, end: 20160112
  9. OMEPRAZOLE. [Concomitant]
     Active Substance: OMEPRAZOLE
     Indication: PRODUCT USED FOR UNKNOWN INDICATION
     Dosage: UNK

REACTIONS (13)
  - Depression [Unknown]
  - Drug withdrawal syndrome [Unknown]
  - Drug screen positive [Recovered/Resolved]
  - Drug ineffective [Unknown]
  - Euphoric mood [Unknown]
  - Drug effect decreased [Unknown]
  - Overdose [Recovered/Resolved]
  - Inappropriate schedule of drug administration [Recovered/Resolved]
  - Drug dependence [Recovered/Resolved]
  - Drug dose omission [Recovered/Resolved]
  - Suicidal ideation [Unknown]
  - Substance abuse [Unknown]
  - Drug abuse [Unknown]

NARRATIVE: CASE EVENT DATE: 20160311
